FAERS Safety Report 24151999 (Version 1)
Quarter: 2024Q3

REPORT INFORMATION
  Report Type: Spontaneous
  Country: US (occurrence: None)
  Receive Date: 20240730
  Receipt Date: 20240730
  Transmission Date: 20241017
  Serious: Yes (Hospitalization)
  Sender: UMEDICA LABS
  Company Number: US-Umedica-000086

PATIENT
  Age: 71 Year
  Sex: Male

DRUGS (5)
  1. ATORVASTATIN [Suspect]
     Active Substance: ATORVASTATIN
     Indication: Hyperlipidaemia
     Dosage: LONG TERM USE
  2. HERBALS\TRIBULUS TERRESTRIS [Suspect]
     Active Substance: HERBALS\TRIBULUS TERRESTRIS
     Indication: Asthenia
     Dosage: CAPSULES
  3. ASPIRIN [Concomitant]
     Active Substance: ASPIRIN
  4. METOPROLOL SUCCINATE [Concomitant]
     Active Substance: METOPROLOL SUCCINATE
  5. ATORVASTATIN [Suspect]
     Active Substance: ATORVASTATIN
     Indication: Coronary artery disease
     Dosage: LONG TERM USE

REACTIONS (3)
  - Rhabdomyolysis [Recovered/Resolved]
  - Drug interaction [Unknown]
  - Hypertransaminasaemia [Not Recovered/Not Resolved]
